FAERS Safety Report 4471494-0 (Version None)
Quarter: 2004Q4

REPORT INFORMATION
  Report Type: 
  Country: None (occurrence: None)
  Receive Date: 20041012
  Receipt Date: 20040623
  Transmission Date: 20050328
  Serious: Yes (Hospitalization)
  Sender: FDA-Public Use
  Company Number: DE-AMGEN-US081666

PATIENT
  Sex: Male

DRUGS (4)
  1. ENBREL [Suspect]
     Indication: JUVENILE ARTHRITIS
     Route: 058
     Dates: start: 20040609, end: 20040619
  2. METHOTREXATE [Concomitant]
  3. PREDNISONE [Concomitant]
  4. ACETAZOLAMIDE [Concomitant]

REACTIONS (1)
  - MACULAR OEDEMA [None]
